FAERS Safety Report 11932839 (Version 1)
Quarter: 2016Q1

REPORT INFORMATION
  Report Type: Spontaneous
  Country: JP (occurrence: JP)
  Receive Date: 20160120
  Receipt Date: 20160120
  Transmission Date: 20160526
  Serious: Yes (Hospitalization)
  Sender: FDA-Public Use
  Company Number: PHJP2016JP001082

PATIENT
  Age: 54 Year
  Sex: Female

DRUGS (3)
  1. PREDONINE [Suspect]
     Active Substance: PREDNISOLONE\PREDNISOLONE ACETATE\PREDNISOLONE SODIUM SUCCINATE
     Indication: LIVER TRANSPLANT REJECTION
     Dosage: UNK
     Route: 048
     Dates: start: 20151218
  2. CELLCEPT [Suspect]
     Active Substance: MYCOPHENOLATE MOFETIL\MYCOPHENOLATE MOFETIL HYDROCHLORIDE
     Indication: LIVER TRANSPLANT REJECTION
     Dosage: UNK
     Route: 048
     Dates: start: 20151218
  3. NEORAL [Suspect]
     Active Substance: CYCLOSPORINE
     Indication: LIVER TRANSPLANT REJECTION
     Dosage: UNK
     Route: 048
     Dates: start: 20151218

REACTIONS (1)
  - Liver transplant rejection [Recovering/Resolving]

NARRATIVE: CASE EVENT DATE: 20151224
